FAERS Safety Report 20710354 (Version 1)
Quarter: 2022Q2

REPORT INFORMATION
  Report Type: Spontaneous
  Country: US (occurrence: US)
  Receive Date: 20220414
  Receipt Date: 20220414
  Transmission Date: 20220721
  Serious: No
  Sender: FDA-Public Use
  Company Number: US-PFIZER INC-2021778329

PATIENT
  Age: 33 Year
  Sex: Female

DRUGS (3)
  1. MARCAINE [Suspect]
     Active Substance: BUPIVACAINE HYDROCHLORIDE
     Indication: Spinal anaesthesia
     Dosage: 1.6 ML
  2. NESACAINE [Suspect]
     Active Substance: CHLOROPROCAINE HYDROCHLORIDE
     Dosage: UNK
  3. TETRACAINE [Suspect]
     Active Substance: TETRACAINE
     Dosage: UNK

REACTIONS (3)
  - Drug ineffective [Unknown]
  - Hypotension [Unknown]
  - Rash [Unknown]
